FAERS Safety Report 5785943-9 (Version None)
Quarter: 2008Q2

REPORT INFORMATION
  Report Type: 
  Country: None (occurrence: None)
  Receive Date: 20080620
  Receipt Date: 20080620
  Transmission Date: 20081010
  Serious: Yes (Other)
  Sender: FDA-Public Use
  Company Number: None

PATIENT
  Age: 47 Year
  Sex: Male
  Weight: 108.8633 kg

DRUGS (1)
  1. LIPITOR [Suspect]
     Dates: start: 20040101, end: 20080619

REACTIONS (7)
  - ANOREXIA [None]
  - ANXIETY [None]
  - DIARRHOEA [None]
  - DRUG EFFECT DECREASED [None]
  - GASTROINTESTINAL DISORDER [None]
  - NAUSEA [None]
  - SLEEP DISORDER [None]
